FAERS Safety Report 7878833-9 (Version None)
Quarter: 2011Q4

REPORT INFORMATION
  Report Type: 
  Country: None (occurrence: None)
  Receive Date: 20111021
  Receipt Date: 20110415
  Transmission Date: 20120403
  Serious: Yes (Other)
  Sender: FDA-Public Use
  Company Number: ALL1-2011-00706

PATIENT
  Age: 10 Year
  Sex: Male
  Weight: 44.4 kg

DRUGS (5)
  1. DDAVP /00361901/ (DESMOPRESSIN) [Concomitant]
  2. VYVANSE [Suspect]
     Indication: ATTENTION DEFICIT/HYPERACTIVITY DISORDER
     Dosage: 20 MG, 1X/DAY;QD, ORAL, 30 MG, 1X/DAY;QD, ORAL, 40 MG, 1X/DAY;QD, ORAL
     Route: 048
     Dates: start: 20100101, end: 20110101
  3. VYVANSE [Suspect]
     Indication: ATTENTION DEFICIT/HYPERACTIVITY DISORDER
     Dosage: 20 MG, 1X/DAY;QD, ORAL, 30 MG, 1X/DAY;QD, ORAL, 40 MG, 1X/DAY;QD, ORAL
     Route: 048
     Dates: start: 20110101, end: 20110131
  4. VYVANSE [Suspect]
     Indication: ATTENTION DEFICIT/HYPERACTIVITY DISORDER
     Dosage: 20 MG, 1X/DAY;QD, ORAL, 30 MG, 1X/DAY;QD, ORAL, 40 MG, 1X/DAY;QD, ORAL
     Route: 048
     Dates: start: 20101001
  5. ALLEGRA D (FEXOFENADINE HYDROCHLORIDE, PSEUDOPHEDRINE HYDROCHLORIDE) [Concomitant]

REACTIONS (4)
  - ABNORMAL LOSS OF WEIGHT [None]
  - REBOUND EFFECT [None]
  - DECREASED APPETITE [None]
  - TIC [None]
